FAERS Safety Report 11229242 (Version 1)
Quarter: 2015Q2

REPORT INFORMATION
  Report Type: Spontaneous
  Country: GB (occurrence: GB)
  Receive Date: 20150630
  Receipt Date: 20150630
  Transmission Date: 20150821
  Serious: Yes (Other)
  Sender: FDA-Public Use
  Company Number: GB-BAXTER-2015BAX034382

PATIENT
  Age: 50 Year
  Sex: Female
  Weight: 53.8 kg

DRUGS (4)
  1. SODIUM CHLORIDE 0.9% INTRAVENOUS INFUSION BP [Suspect]
     Active Substance: SODIUM CHLORIDE
     Dosage: 3 CYCLES
     Route: 042
     Dates: start: 20150601, end: 20150601
  2. DOCETAXEL. [Suspect]
     Active Substance: DOCETAXEL
     Indication: BREAST CANCER
     Route: 042
     Dates: start: 20150622, end: 20150622
  3. DOCETAXEL. [Suspect]
     Active Substance: DOCETAXEL
     Route: 042
     Dates: start: 20150601, end: 20150601
  4. SODIUM CHLORIDE 0.9% INTRAVENOUS INFUSION BP [Suspect]
     Active Substance: SODIUM CHLORIDE
     Indication: BREAST CANCER
     Dosage: 3 CYCLES
     Route: 042
     Dates: start: 20150622, end: 20150622

REACTIONS (4)
  - Dizziness [Recovering/Resolving]
  - Abdominal pain [Recovering/Resolving]
  - Dyspnoea [Recovering/Resolving]
  - Product deposit [Unknown]

NARRATIVE: CASE EVENT DATE: 20150622
